FAERS Safety Report 7914527-9 (Version None)
Quarter: 2011Q4

REPORT INFORMATION
  Report Type: 
  Country: None (occurrence: None)
  Receive Date: 20111115
  Receipt Date: 20111102
  Transmission Date: 20120403
  Serious: Yes (Hospitalization, Other)
  Sender: FDA-Public Use
  Company Number: PHEH2011US02426

PATIENT
  Sex: Male
  Weight: 65.76 kg

DRUGS (21)
  1. PLAVIX [Concomitant]
     Dosage: 75 MG, UNK
     Route: 048
  2. DIFLUCAN [Concomitant]
     Route: 042
  3. PLENDIL [Concomitant]
     Dosage: 2.5 MG, UNK
     Route: 048
  4. TYLENOL-500 [Concomitant]
     Dosage: 650 MG, UNK
     Route: 048
  5. VITAMIN D [Concomitant]
     Dosage: 2000 U, UNK
     Route: 048
  6. LEVOXYL [Concomitant]
     Dosage: 137 UG, UNK
     Route: 048
  7. MULTIPLE VITAMINS [Concomitant]
  8. OMEPRAZOLE [Concomitant]
     Dosage: 10 MG, UNK
     Route: 048
  9. CALCIUM 500 [Concomitant]
  10. EXJADE [Suspect]
     Indication: IRON OVERLOAD
     Dosage: 3 DF, EVERY DAY
     Route: 048
     Dates: start: 20110722, end: 20111001
  11. TRENTAL [Concomitant]
     Dosage: 400 MG, UNK
     Route: 048
  12. LEXAPRO [Concomitant]
     Dosage: 20 MG, UNK
     Route: 048
  13. AMITRIPTYLINE HCL [Concomitant]
     Dosage: 150 MG, UNK
     Route: 048
  14. MAGNESIUM OXIDE [Concomitant]
     Dosage: 400 MG, UNK
     Route: 048
  15. VALTREX [Concomitant]
     Dosage: 500 MG, UNK
     Route: 048
  16. EXJADE [Suspect]
     Dosage: 3 DF, EVERY DAY
     Route: 048
     Dates: start: 20111101
  17. GABAPENTIN [Concomitant]
     Dosage: 100 MG, UNK
     Route: 048
  18. AUGMENTIN [Concomitant]
     Dosage: 875 MG, UNK
     Route: 048
  19. LASIX [Concomitant]
     Dosage: 20 MG, UNK
     Route: 048
  20. MIRALAX [Concomitant]
     Dosage: 3350 NF
     Route: 048
  21. CRESTOR [Concomitant]
     Dosage: 10 MG, UNK
     Route: 048

REACTIONS (4)
  - DEHYDRATION [None]
  - LUNG NEOPLASM MALIGNANT [None]
  - MOUTH ULCERATION [None]
  - WHITE BLOOD CELL COUNT DECREASED [None]
